FAERS Safety Report 4651618-2 (Version None)
Quarter: 2005Q2

REPORT INFORMATION
  Report Type: 
  Country: None (occurrence: None)
  Receive Date: 20050404
  Receipt Date: 20041220
  Transmission Date: 20051028
  Serious: No
  Sender: FDA-Public Use
  Company Number: USA041183282

PATIENT
  Age: 40 Year
  Sex: Female

DRUGS (1)
  1. CYMBALTA [Suspect]
     Dosage: 120 MG DAY
     Dates: start: 20040101

REACTIONS (6)
  - CONSTIPATION [None]
  - DIZZINESS [None]
  - DYSURIA [None]
  - HEADACHE [None]
  - NIGHTMARE [None]
  - PRESCRIBED OVERDOSE [None]
